FAERS Safety Report 11131353 (Version 1)
Quarter: 2015Q2

REPORT INFORMATION
  Report Type: Spontaneous
  Country: US (occurrence: None)
  Receive Date: 20150518
  Receipt Date: 20150518
  Transmission Date: 20150821
  Serious: No
  Sender: FDA-Public Use
  Company Number: AUR-APL-2013-04627

PATIENT
  Age: 75 Year
  Sex: Male
  Weight: 100 kg

DRUGS (7)
  1. QUINAPRIL [Suspect]
     Active Substance: QUINAPRIL\QUINAPRIL HYDROCHLORIDE
     Indication: PROPHYLAXIS
     Dates: start: 2002
  2. LYRICA [Suspect]
     Active Substance: PREGABALIN
     Indication: NEUROPATHY PERIPHERAL
     Dates: start: 2009
  3. QUINAPRIL [Suspect]
     Active Substance: QUINAPRIL\QUINAPRIL HYDROCHLORIDE
     Indication: RENAL DISORDER
     Dates: start: 2002
  4. OMEPRAZOLE (OMEPRAZOLE) [Suspect]
     Active Substance: OMEPRAZOLE
     Indication: GASTRIC DISORDER
     Dates: start: 2002
  5. TRAMADOL (TRAMADOL) [Concomitant]
     Active Substance: TRAMADOL
  6. METFORMIN HYDROCHLORIDE TABLETS USP 1000 MG [Suspect]
     Active Substance: METFORMIN HYDROCHLORIDE
     Indication: DIABETES MELLITUS
     Dates: start: 2000
  7. ASPIRIN (ACETYLSALICYLIC ACID) [Suspect]
     Active Substance: ASPIRIN
     Indication: BLOOD DISORDER
     Dates: start: 1992

REACTIONS (6)
  - Drug ineffective [None]
  - Pain [None]
  - Drug interaction [None]
  - Pain in extremity [None]
  - Insomnia [None]
  - Burning sensation [None]

NARRATIVE: CASE EVENT DATE: 2013
